FAERS Safety Report 6944694-5 (Version None)
Quarter: 2010Q3

REPORT INFORMATION
  Report Type: 
  Country: None (occurrence: None)
  Receive Date: 20100827
  Receipt Date: 20100817
  Transmission Date: 20110219
  Serious: Yes (Hospitalization)
  Sender: FDA-Public Use
  Company Number: US-WYE-H17001010

PATIENT
  Sex: Female
  Weight: 68.1 kg

DRUGS (3)
  1. EFFEXOR XR [Suspect]
     Indication: DEPRESSION
     Dates: start: 19990101, end: 20100401
  2. CLONAZEPAM [Concomitant]
     Indication: PANIC ATTACK
  3. METHADONE [Concomitant]
     Indication: PAIN
     Dosage: UNKNOWN

REACTIONS (3)
  - ANKLE FRACTURE [None]
  - DRUG INEFFECTIVE [None]
  - FOOT FRACTURE [None]
